FAERS Safety Report 6583784-6 (Version None)
Quarter: 2010Q1

REPORT INFORMATION
  Report Type: 
  Country: None (occurrence: None)
  Receive Date: 20100213
  Receipt Date: 20100213
  Transmission Date: 20100710
  Serious: Yes (Other)
  Sender: FDA-Public Use
  Company Number: None

PATIENT
  Age: 63 Year
  Sex: Female
  Weight: 72.5755 kg

DRUGS (1)
  1. ZOMETA [Suspect]
     Indication: BONE DENSITY DECREASED
     Dosage: IV
     Route: 042
     Dates: start: 20100205, end: 20100205

REACTIONS (6)
  - ARTHRALGIA [None]
  - BONE PAIN [None]
  - DECREASED APPETITE [None]
  - DYSGEUSIA [None]
  - MUSCULOSKELETAL PAIN [None]
  - NAUSEA [None]
